FAERS Safety Report 8135984-1 (Version None)
Quarter: 2012Q1

REPORT INFORMATION
  Report Type: 
  Country: None (occurrence: None)
  Receive Date: 20120209
  Receipt Date: 20120123
  Transmission Date: 20120608
  Serious: No
  Sender: FDA-Public Use
  Company Number: WAES 96091233

PATIENT
  Age: 67 Year
  Sex: Female

DRUGS (4)
  1. PROVERA [Concomitant]
  2. FOSAMAX [Suspect]
     Indication: PRODUCT USED FOR UNKNOWN INDICATION
     Dosage: 10 MG. DAILY, PO
     Route: 048
     Dates: start: 19960901
  3. PREMARIN [Concomitant]
  4. SYNTHROID [Concomitant]

REACTIONS (1)
  - NAUSEA [None]
